FAERS Safety Report 7200187-1 (Version None)
Quarter: 2010Q4

REPORT INFORMATION
  Report Type: 
  Country: None (occurrence: None)
  Receive Date: 20101228
  Receipt Date: 20101221
  Transmission Date: 20110411
  Serious: Yes (Life-Threatening, Hospitalization, Disabling)
  Sender: FDA-Public Use
  Company Number: DK-PFIZER INC-2010017443

PATIENT
  Age: 43 Year
  Sex: Male

DRUGS (1)
  1. SOLU-MEDROL [Suspect]
     Indication: COLITIS
     Dosage: UNK
     Route: 030
     Dates: start: 20040119, end: 20040128

REACTIONS (3)
  - FATIGUE [None]
  - PANCREATIC INSUFFICIENCY [None]
  - PANCREATITIS CHRONIC [None]
